FAERS Safety Report 16761914 (Version 2)
Quarter: 2019Q4

REPORT INFORMATION
  Report Type: Spontaneous
  Country: RO (occurrence: RO)
  Receive Date: 20190830
  Receipt Date: 20191001
  Transmission Date: 20200122
  Serious: Yes (Death, Other)
  Sender: FDA-Public Use
  Company Number: RO-BAUSCH-BL-2019-024174

PATIENT
  Age: 66 Year
  Sex: Female
  Weight: 78 kg

DRUGS (13)
  1. METHOTREXATE. [Suspect]
     Active Substance: METHOTREXATE
     Dosage: VIALS OF 5 G 345 MG I.V. IN A 22 HOURS PERFUSION, IN 03/FEB/2017
     Route: 042
     Dates: start: 20170203, end: 2017
  2. METHOTREXATE. [Suspect]
     Active Substance: METHOTREXATE
     Dosage: VIALS OF 5 G, 15 MG, I.T., IN 30/JAN/2017
     Route: 037
     Dates: start: 20170130, end: 2017
  3. DEXAMETHASONE. [Concomitant]
     Active Substance: DEXAMETHASONE
     Indication: PRODUCT USED FOR UNKNOWN INDICATION
     Dosage: ONE DROP PER HOUR IN THE CONJUNCTIVAL SAC, BETWEEN 4 AND 7/FEB/2017
     Route: 031
     Dates: start: 20170204, end: 20170207
  4. DEXAMETHASONE. [Suspect]
     Active Substance: DEXAMETHASONE
     Indication: B PRECURSOR TYPE ACUTE LEUKAEMIA
     Dosage: 2 CYCLES;5 VIALS/DAY, I.V., BETWEEN 13 AND 16/JAN/2017 AND BETWEEN 23 AND 26/JAN/2017
     Route: 042
     Dates: start: 20170123, end: 20170126
  5. VINCRISTINE [Suspect]
     Active Substance: VINCRISTINE
     Indication: B PRECURSOR TYPE ACUTE LEUKAEMIA
     Dosage: 2 CYCLES;VIALS OF 1 MG, 2 VIALS/DAY, I.V., ON 15/JAN/2017 AND 23/JAN/2017.
     Route: 042
     Dates: start: 201701, end: 20170123
  6. METHOTREXATE. [Suspect]
     Active Substance: METHOTREXATE
     Indication: B PRECURSOR TYPE ACUTE LEUKAEMIA
     Dosage: VIALS OF 5 G 1375 MG I.V. IN A 22 HOURS PERFUSION, IN 03/FEB/2017
     Route: 042
     Dates: start: 20170203, end: 2017
  7. VINCRISTINE [Suspect]
     Active Substance: VINCRISTINE
     Dosage: 2 CYCLES;VIALS OF 1 MG, 2 VIALS/DAY, I.V., ON 15/JAN/2017 AND 23/JAN/2017.
     Route: 042
     Dates: start: 20170115, end: 201701
  8. CYTARABINE. [Suspect]
     Active Substance: CYTARABINE
     Dosage: VIALS OF 1 G, 25 MG I.T. ON 30/JAN/2017; 2 CYCLICAL
     Route: 039
     Dates: start: 20170130, end: 20170205
  9. CYCLOPHOSPHAMIDE. [Suspect]
     Active Substance: CYCLOPHOSPHAMIDE
     Indication: B PRECURSOR TYPE ACUTE LEUKAEMIA
     Dosage: 2 CYCLES;VIALS OF 200 MG, 340 MG/DOSE, 2 DOSES/DAY, I.V., AT 12 HOURS INTERVAL,
     Route: 042
     Dates: start: 20170113, end: 20170115
  10. METHYLPREDNISOLONE. [Suspect]
     Active Substance: METHYLPREDNISOLONE
     Indication: B PRECURSOR TYPE ACUTE LEUKAEMIA
     Dosage: 2 CYCLES;VIALS OF 500 MG, 50 MG AT 12 HOURS INTERVAL, I.V., 6 DOSES, BETWEEN 3 AND 5/FEB/2017
     Route: 042
     Dates: start: 20170203, end: 20170205
  11. DEXAMETHASONE. [Suspect]
     Active Substance: DEXAMETHASONE
     Dosage: 1 CYCLES;5 VIALS/DAY, I.V., BETWEEN 13 AND 16/JAN/2017 AND BETWEEN 23 AND 26/JAN/2017
     Route: 042
     Dates: start: 20170113, end: 20170116
  12. CYTARABINE. [Suspect]
     Active Substance: CYTARABINE
     Indication: B PRECURSOR TYPE ACUTE LEUKAEMIA
     Dosage: 2 CYCLES;VIALS OF 2 G, 2X2 GRAMS/DAY, IN I.V., PERFUSIONS OF 2 HOURS, AT 12 HOURS INTERVAL
     Route: 042
     Dates: start: 20170204, end: 20170205
  13. DOXORUBICIN [Suspect]
     Active Substance: DOXORUBICIN
     Indication: B PRECURSOR TYPE ACUTE LEUKAEMIA
     Dosage: 2 CYCLES; VIALS OF 50 MG, 80 MG I.V. IN 16/JAN/2017.
     Route: 042
     Dates: start: 20170116, end: 2017

REACTIONS (2)
  - Aplasia [Recovering/Resolving]
  - Clostridium difficile colitis [Recovered/Resolved]

NARRATIVE: CASE EVENT DATE: 2017
